FAERS Safety Report 12210454 (Version 1)
Quarter: 2016Q1

REPORT INFORMATION
  Report Type: Spontaneous
  Country: GB (occurrence: GB)
  Receive Date: 20160325
  Receipt Date: 20160325
  Transmission Date: 20160526
  Serious: Yes (Hospitalization, Other)
  Sender: FDA-Public Use
  Company Number: GB-WATSON-2016-06133

PATIENT
  Age: 84 Year
  Sex: Male

DRUGS (5)
  1. FUROSEMIDE. [Concomitant]
     Active Substance: FUROSEMIDE
     Indication: PRODUCT USED FOR UNKNOWN INDICATION
     Dosage: 40 MG, QAM
     Route: 065
  2. IRBESARTAN. [Concomitant]
     Active Substance: IRBESARTAN
     Indication: PRODUCT USED FOR UNKNOWN INDICATION
     Dosage: 300 MG, QAM
     Route: 065
  3. DOXAZOSIN [Concomitant]
     Active Substance: DOXAZOSIN\DOXAZOSIN MESYLATE
     Indication: PRODUCT USED FOR UNKNOWN INDICATION
     Dosage: 4 MG, QAM
     Route: 065
  4. ATENOLOL (UNKNOWN) [Suspect]
     Active Substance: ATENOLOL
     Indication: PRODUCT USED FOR UNKNOWN INDICATION
     Dosage: 25 MG, QAM
     Route: 048
  5. GAVISCON                           /00237601/ [Concomitant]
     Active Substance: ALUMINUM HYDROXIDE\MAGNESIUM CARBONATE
     Indication: PRODUCT USED FOR UNKNOWN INDICATION
     Dosage: 5 ML, PRN; FOUR TIMES DAILY
     Route: 065

REACTIONS (2)
  - Hypotension [Recovered/Resolved]
  - Bradycardia [Recovered/Resolved]
